FAERS Safety Report 9093094 (Version 1)
Quarter: 2013Q1

REPORT INFORMATION
  Report Type: Spontaneous
  Country: US (occurrence: None)
  Receive Date: 20130213
  Receipt Date: 20130213
  Transmission Date: 20140127
  Serious: No
  Sender: FDA-Public Use
  Company Number: None

PATIENT
  Sex: Female

DRUGS (2)
  1. MAKENA [Suspect]
     Indication: PREGNANCY
     Route: 030
     Dates: start: 201212, end: 201301
  2. MAKENA [Suspect]
     Indication: PREMATURE LABOUR
     Route: 030
     Dates: start: 201212, end: 201301

REACTIONS (3)
  - Injection site reaction [None]
  - Injection site swelling [None]
  - Injection site pruritus [None]
